FAERS Safety Report 9690942 (Version 1)
Quarter: 2013Q4

REPORT INFORMATION
  Report Type: Spontaneous
  Country: US (occurrence: US)
  Receive Date: 20131115
  Receipt Date: 20131115
  Transmission Date: 20140711
  Serious: Yes (Other)
  Sender: FDA-Public Use
  Company Number: US-PFIZER INC-2013326233

PATIENT
  Age: 63 Year
  Sex: Female
  Weight: 78.46 kg

DRUGS (5)
  1. CELEBREX [Suspect]
     Indication: PAIN IN EXTREMITY
     Dosage: 200 MG, 1X/DAY
     Route: 048
     Dates: end: 201307
  2. CELEBREX [Suspect]
     Indication: ARTHRALGIA
  3. ACCURETIC [Suspect]
     Indication: HYPERTENSION
     Dosage: 25/12.5MG, 1 DF, 1X/DAY
     Route: 048
  4. DETROL [Suspect]
     Indication: HYPERTONIC BLADDER
     Dosage: 2 MG, 1X/DAY
     Route: 048
  5. FOLBIC [Concomitant]
     Indication: VITAMIN SUPPLEMENTATION
     Dosage: UNK

REACTIONS (1)
  - Back disorder [Unknown]
